FAERS Safety Report 12178527 (Version 1)
Quarter: 2016Q1

REPORT INFORMATION
  Report Type: Spontaneous
  Country: US (occurrence: US)
  Receive Date: 20160315
  Receipt Date: 20160315
  Transmission Date: 20160526
  Serious: Yes (Hospitalization, Other)
  Sender: FDA-Public Use
  Company Number: US-AMGEN-USASP2016029623

PATIENT
  Age: 78 Year
  Sex: Female
  Weight: 63.4 kg

DRUGS (1)
  1. PROLIA [Suspect]
     Active Substance: DENOSUMAB
     Indication: OSTEOPOROSIS
     Dosage: 60 MG/ML, UNK
     Route: 065
     Dates: start: 201403

REACTIONS (16)
  - Hip fracture [Unknown]
  - Back pain [Unknown]
  - Arthralgia [Unknown]
  - Delirium [Recovered/Resolved]
  - Leukocytosis [Unknown]
  - Stress fracture [Unknown]
  - Adverse drug reaction [Unknown]
  - Injury [Unknown]
  - Fall [Unknown]
  - Anaemia [Unknown]
  - Hyperglycaemia [Unknown]
  - Osteoarthritis [Recovered/Resolved]
  - Femur fracture [Unknown]
  - Cholecystectomy [Recovered/Resolved]
  - Mental status changes [Unknown]
  - Urinary tract infection [Recovered/Resolved]

NARRATIVE: CASE EVENT DATE: 201510
